FAERS Safety Report 23581018 (Version 1)
Quarter: 2024Q1

REPORT INFORMATION
  Report Type: Spontaneous
  Country: FR (occurrence: FR)
  Receive Date: 20240229
  Receipt Date: 20240229
  Transmission Date: 20240410
  Serious: Yes (Hospitalization)
  Sender: FDA-Public Use
  Company Number: None

PATIENT
  Age: 11 Year
  Sex: Female
  Weight: 47 kg

DRUGS (2)
  1. METHOTREXATE (METHOTREXATE SODIUM) [Interacting]
     Active Substance: METHOTREXATE SODIUM
     Indication: Philadelphia positive acute lymphocytic leukaemia
     Dosage: DOSAGE: 5 G/M^2 10 PER CENT (5 G/50 ML), SOLUTION FOR INJECTION
     Route: 042
     Dates: start: 20231207, end: 20231207
  2. GLIVEC [Interacting]
     Active Substance: IMATINIB MESYLATE
     Indication: Philadelphia positive acute lymphocytic leukaemia
     Route: 048
     Dates: start: 20230812, end: 20231221

REACTIONS (3)
  - Chemotherapeutic drug level increased [Recovered/Resolved]
  - Drug interaction [Recovered/Resolved]
  - Incorrect disposal of product [Recovered/Resolved]

NARRATIVE: CASE EVENT DATE: 20231209
